FAERS Safety Report 8277674-0 (Version None)
Quarter: 2012Q2

REPORT INFORMATION
  Report Type: 
  Country: None (occurrence: None)
  Receive Date: 20120412
  Receipt Date: 20120404
  Transmission Date: 20120825
  Serious: Yes (Other)
  Sender: FDA-Public Use
  Company Number: US-ROCHE-1056652

PATIENT
  Sex: Female

DRUGS (6)
  1. FOSAMAX [Suspect]
     Indication: OSTEOPENIA
  2. ALENDRONATE SODIUM [Suspect]
     Indication: OSTEOPENIA
  3. BONIVA [Suspect]
     Indication: OSTEOPOROSIS
     Dates: start: 20031201, end: 20091101
  4. BONIVA [Suspect]
     Indication: OSTEOPENIA
  5. FOSAMAX [Suspect]
     Indication: OSTEOPOROSIS
     Dates: start: 20031201, end: 20091101
  6. ALENDRONATE SODIUM [Suspect]
     Indication: OSTEOPOROSIS
     Dates: start: 20031201, end: 20091101

REACTIONS (3)
  - FEMUR FRACTURE [None]
  - LOW TURNOVER OSTEOPATHY [None]
  - ANXIETY [None]
